FAERS Safety Report 5691438-3 (Version None)
Quarter: 2008Q2

REPORT INFORMATION
  Report Type: 
  Country: None (occurrence: None)
  Receive Date: 20080401
  Receipt Date: 20080401
  Transmission Date: 20081010
  Serious: Yes (Other)
  Sender: FDA-Public Use
  Company Number: None

PATIENT
  Age: 29 Year
  Sex: Female
  Weight: 61.2356 kg

DRUGS (3)
  1. SINGULAIR [Suspect]
     Indication: ASTHMA
     Dosage: 1 A DAY
     Dates: start: 20020101, end: 20080201
  2. SINGULAIR [Suspect]
     Indication: HYPERSENSITIVITY
     Dosage: 1 A DAY
     Dates: start: 20020101, end: 20080201
  3. PULMICORT [Suspect]
     Indication: ASTHMA
     Dosage: 2 INHALES A DAY
     Route: 055
     Dates: start: 20020101, end: 20080201

REACTIONS (13)
  - ANHEDONIA [None]
  - ANXIETY [None]
  - BLINDNESS TRANSIENT [None]
  - EYE DISORDER [None]
  - FEAR [None]
  - HEADACHE [None]
  - MOOD ALTERED [None]
  - MYALGIA [None]
  - NIGHTMARE [None]
  - PANIC ATTACK [None]
  - STRESS [None]
  - THINKING ABNORMAL [None]
  - TREMOR [None]
